FAERS Safety Report 17118590 (Version 2)
Quarter: 2020Q4

REPORT INFORMATION
  Report Type: Spontaneous
  Country: PK (occurrence: PK)
  Receive Date: 20191206
  Receipt Date: 20201023
  Transmission Date: 20210113
  Serious: Yes (Other)
  Sender: FDA-Public Use
  Company Number: PK-AMGEN-PAKSP2019202414

PATIENT
  Age: 19 Year
  Sex: Male

DRUGS (7)
  1. FOLIC ACID. [Concomitant]
     Active Substance: FOLIC ACID
     Dosage: 5MG TAB, ONE TABLET TWICE A WEEK TO CONTINUE. MON TUE
  2. SALAZODINE [Concomitant]
     Dosage: 1000 MG, 2X/DAY (2 TABLETS MORNING+2 TABLETS EVENING AFTER MEAL TO CONTINUE)
     Dates: start: 2015
  3. AIRTAL [Concomitant]
     Active Substance: ACECLOFENAC
     Dosage: 1+1
  4. METHOTREXATE. [Concomitant]
     Active Substance: METHOTREXATE
     Dosage: 10MG, 1XTABLET. ONCE A WEEK. AFTER MEAL, CONTINUE, 1HRS AFTER BREAKFAST
     Dates: start: 201906
  5. SANGOBION [FERRIC HYDROXIDE POLYMALTOSE COMPLEX;FOLIC ACID] [Concomitant]
     Dosage: ONE CAPSULE IN AFTERNOON AFTER MEAL TO CONTINUE
  6. ENBREL [Suspect]
     Active Substance: ETANERCEPT
     Indication: SPONDYLITIS
     Dosage: 50 MILLIGRAM, QWK
     Route: 058
  7. NEXIUM [Concomitant]
     Active Substance: ESOMEPRAZOLE MAGNESIUM
     Dosage: 20 MG, ONCE CAPSULE ONCE A DAY BEFORE MEAL TO CONTINUE

REACTIONS (5)
  - Haematuria [Unknown]
  - Off label use [Unknown]
  - Nephrolithiasis [Unknown]
  - Red blood cell sedimentation rate increased [Unknown]
  - Product use in unapproved indication [Unknown]

NARRATIVE: CASE EVENT DATE: 20191030
